FAERS Safety Report 19034827 (Version 1)
Quarter: 2021Q1

REPORT INFORMATION
  Report Type: Spontaneous
  Country: CZ (occurrence: CZ)
  Receive Date: 20210320
  Receipt Date: 20210320
  Transmission Date: 20210420
  Serious: Yes (Death, Hospitalization, Other)
  Sender: FDA-Public Use
  Company Number: CZ-IPCA LABORATORIES LIMITED-IPC-2021-CZ-000625

PATIENT

DRUGS (1)
  1. METFORMIN [Suspect]
     Active Substance: METFORMIN HYDROCHLORIDE
     Indication: TYPE 2 DIABETES MELLITUS
     Dosage: UNK
     Route: 065

REACTIONS (10)
  - Respiratory failure [Fatal]
  - Tachycardia [Fatal]
  - Septic shock [Fatal]
  - Lactic acidosis [Fatal]
  - Toxicity to various agents [Fatal]
  - Liver disorder [Fatal]
  - Renal injury [Fatal]
  - Cardiac failure [Fatal]
  - Cardiogenic shock [Fatal]
  - Coagulopathy [Fatal]
